FAERS Safety Report 23469166 (Version 1)
Quarter: 2024Q1

REPORT INFORMATION
  Report Type: Spontaneous
  Country: CN (occurrence: None)
  Receive Date: 20240202
  Receipt Date: 20240202
  Transmission Date: 20240410
  Serious: Yes (Hospitalization, Other)
  Sender: FDA-Public Use
  Company Number: CN-ROCHE-3501250

PATIENT
  Sex: Male
  Weight: 42.676 kg

DRUGS (1)
  1. MABTHERA [Suspect]
     Active Substance: RITUXIMAB
     Indication: Diffuse large B-cell lymphoma
     Route: 065

REACTIONS (9)
  - Alopecia [Unknown]
  - Asthenia [Unknown]
  - Wheezing [Unknown]
  - Fall [Unknown]
  - Neuropathy peripheral [Unknown]
  - Rectal cancer [Unknown]
  - Gastric ulcer [Unknown]
  - Weight decreased [Unknown]
  - Asthenia [Unknown]

NARRATIVE: CASE EVENT DATE: 20130101
